FAERS Safety Report 17356836 (Version 1)
Quarter: 2020Q1

REPORT INFORMATION
  Report Type: Spontaneous
  Country: US (occurrence: US)
  Receive Date: 20200131
  Receipt Date: 20200131
  Transmission Date: 20200409
  Serious: Yes (Other)
  Sender: FDA-Public Use
  Company Number: US-LANNETT COMPANY, INC.-US-2020LAN000025

PATIENT

DRUGS (1)
  1. LEVETIRACETAM. [Suspect]
     Active Substance: LEVETIRACETAM
     Indication: SEIZURE
     Dosage: 100 MG, QD
     Route: 048
     Dates: start: 2019

REACTIONS (5)
  - Aggression [Unknown]
  - Fatigue [Unknown]
  - Seizure [Unknown]
  - Mental status changes [Unknown]
  - Diarrhoea [Unknown]
